FAERS Safety Report 6917160-0 (Version None)
Quarter: 2010Q3

REPORT INFORMATION
  Report Type: 
  Country: None (occurrence: None)
  Receive Date: 20100804
  Receipt Date: 20100721
  Transmission Date: 20110219
  Serious: Yes (Disabling)
  Sender: FDA-Public Use
  Company Number: 2010-2220

PATIENT
  Age: 54 Year
  Sex: Female

DRUGS (3)
  1. DYSPORT [Suspect]
     Indication: OFF LABEL USE
     Dosage: 140 UNITS (140 UNITS, SINGLE CYCLE),
     Dates: start: 20100615, end: 20100615
  2. DYSPORT [Suspect]
     Indication: SKIN WRINKLING
     Dosage: 140 UNITS (140 UNITS, SINGLE CYCLE),
     Dates: start: 20100615, end: 20100615
  3. INSULIN (INSULIN) [Concomitant]

REACTIONS (3)
  - EYELID PTOSIS [None]
  - OFF LABEL USE [None]
  - PERIORBITAL OEDEMA [None]
